FAERS Safety Report 11074183 (Version 1)
Quarter: 2015Q2

REPORT INFORMATION
  Report Type: Spontaneous
  Country: US (occurrence: None)
  Receive Date: 20150427
  Receipt Date: 20150427
  Transmission Date: 20150821
  Serious: Yes (Hospitalization)
  Sender: FDA-Public Use
  Company Number: 15AE018

PATIENT
  Sex: Male

DRUGS (1)
  1. WALGREENS ACETAMINOPHEN 250 MG/ASPIRIN 250 MG CAFFEINE 65 MG FILM COATED WHITE CAPLETS [Suspect]
     Active Substance: ACETAMINOPHEN\ASPIRIN\CAFFEINE
     Indication: HEADACHE
     Route: 048

REACTIONS (2)
  - Blindness unilateral [None]
  - Headache [None]
